FAERS Safety Report 7737402-1 (Version None)
Quarter: 2011Q3

REPORT INFORMATION
  Report Type: 
  Country: None (occurrence: None)
  Receive Date: 20110908
  Receipt Date: 20110531
  Transmission Date: 20111222
  Serious: No
  Sender: FDA-Public Use
  Company Number: US-BAYER-2011-047174

PATIENT
  Age: 59 Year
  Sex: Male
  Weight: 81.633 kg

DRUGS (3)
  1. METFORMIN HCL [Concomitant]
  2. ULTRAVIST 150 [Suspect]
     Indication: COMPUTERISED TOMOGRAM
     Dosage: 100 ML, ONCE
     Route: 042
     Dates: start: 20110531, end: 20110531
  3. LANTUS [Concomitant]

REACTIONS (2)
  - URTICARIA [None]
  - PRURITUS [None]
